FAERS Safety Report 24587522 (Version 1)
Quarter: 2024Q4

REPORT INFORMATION
  Report Type: Spontaneous
  Country: US (occurrence: US)
  Receive Date: 20241107
  Receipt Date: 20241107
  Transmission Date: 20250115
  Serious: Yes (Hospitalization, Other)
  Sender: ALEMBIC
  Company Number: US-MLMSERVICE-20241017-PI230813-00176-2

PATIENT
  Age: 80 Year
  Sex: Female

DRUGS (1)
  1. HYDROCHLOROTHIAZIDE [Suspect]
     Active Substance: HYDROCHLOROTHIAZIDE
     Indication: Product used for unknown indication
     Dosage: CHRONIC HYDROCHLOROTHIAZIDE USE
     Route: 065

REACTIONS (6)
  - Atrial fibrillation [Unknown]
  - Asthenia [Unknown]
  - Diarrhoea [Unknown]
  - Dizziness [Unknown]
  - Hypokalaemia [Recovered/Resolved]
  - Hypomagnesaemia [Recovered/Resolved]
